FAERS Safety Report 9090569 (Version 1)
Quarter: 2013Q1

REPORT INFORMATION
  Report Type: Spontaneous
  Country: US (occurrence: US)
  Receive Date: 20130131
  Receipt Date: 20130131
  Transmission Date: 20140127
  Serious: No
  Sender: FDA-Public Use
  Company Number: US-BAYER-2013-011414

PATIENT
  Sex: Female
  Weight: 77 kg

DRUGS (7)
  1. BETASERON [Suspect]
     Indication: MULTIPLE SCLEROSIS
     Dosage: 0.3 MG, UNK
  2. LASIX [Concomitant]
     Dosage: 20 MG, UNK
  3. TOPROL XL [Concomitant]
     Dosage: 25 MG, UNK
  4. VIIBRYD [Concomitant]
     Dosage: 10 MG, UNK
  5. VITAMIN D [Concomitant]
     Dosage: 1000 U, UNK
  6. HYDROCODONE [Concomitant]
  7. HOMATROPINE [Concomitant]

REACTIONS (4)
  - Influenza like illness [Unknown]
  - Vomiting [Unknown]
  - Memory impairment [Unknown]
  - Balance disorder [Unknown]
